FAERS Safety Report 14337231 (Version 2)
Quarter: 2018Q1

REPORT INFORMATION
  Report Type: Spontaneous
  Country: DE (occurrence: DE)
  Receive Date: 20171229
  Receipt Date: 20180209
  Transmission Date: 20180509
  Serious: Yes (Hospitalization)
  Sender: FDA-Public Use
  Company Number: DE-JNJFOC-20171234772

PATIENT
  Age: 57 Year
  Sex: Male
  Weight: 98.5 kg

DRUGS (2)
  1. PIRFENIDONE. [Concomitant]
     Active Substance: PIRFENIDONE
     Route: 065
     Dates: start: 2013
  2. XARELTO [Suspect]
     Active Substance: RIVAROXABAN
     Indication: PULMONARY EMBOLISM
     Route: 048
     Dates: start: 20170825

REACTIONS (2)
  - Pulmonary fibrosis [Recovered/Resolved]
  - Non-small cell lung cancer [Recovering/Resolving]

NARRATIVE: CASE EVENT DATE: 20171117
